FAERS Safety Report 13109997 (Version 1)
Quarter: 2017Q1

REPORT INFORMATION
  Report Type: Spontaneous
  Country: US (occurrence: US)
  Receive Date: 20170112
  Receipt Date: 20170112
  Transmission Date: 20170428
  Serious: Yes (Other)
  Sender: FDA-Public Use
  Company Number: US-ROCHE-1101207

PATIENT
  Sex: Male

DRUGS (3)
  1. ACTIVASE [Suspect]
     Active Substance: ALTEPLASE
     Indication: ACUTE MYOCARDIAL INFARCTION
     Route: 040
     Dates: start: 19951118
  2. ACTIVASE [Suspect]
     Active Substance: ALTEPLASE
     Dosage: OVER 30 MINS
     Route: 041
     Dates: start: 19951118
  3. ACTIVASE [Suspect]
     Active Substance: ALTEPLASE
     Dosage: OVER 1 HR
     Route: 065
     Dates: start: 19951118

REACTIONS (3)
  - Hypotension [Unknown]
  - Bradycardia [Unknown]
  - Arrhythmia [Unknown]
